FAERS Safety Report 4750629-6 (Version None)
Quarter: 2005Q3

REPORT INFORMATION
  Report Type: 
  Country: None (occurrence: None)
  Receive Date: 20050823
  Receipt Date: 20050801
  Transmission Date: 20060218
  Serious: Yes (Life-Threatening, Hospitalization, Other)
  Sender: FDA-Public Use
  Company Number: PHBS2005BR11202

PATIENT
  Age: 48 Year
  Sex: Female
  Weight: 60 kg

DRUGS (5)
  1. TEGRETOL [Suspect]
     Dosage: 20 X 400 MG ONCE/SINGLE
     Route: 048
     Dates: start: 20050801, end: 20050801
  2. ZYPREXA [Concomitant]
     Indication: DEPRESSION
     Dosage: UNK, UNK
     Route: 048
     Dates: start: 20040101
  3. ZOLOFT [Concomitant]
     Indication: DEPRESSION
     Route: 048
  4. FRONTAL [Concomitant]
     Indication: DEPRESSION
     Dosage: 1 TAB/NIGHT
     Route: 048
  5. CARBOLITIUM [Concomitant]
     Indication: DEPRESSION
     Route: 048

REACTIONS (10)
  - ASPIRATION [None]
  - INTUBATION [None]
  - LOSS OF CONSCIOUSNESS [None]
  - LUNG DISORDER [None]
  - LUNG INFECTION [None]
  - OVERDOSE [None]
  - RESPIRATORY DEPRESSION [None]
  - SPEECH DISORDER [None]
  - SUICIDE ATTEMPT [None]
  - VOMITING [None]
